FAERS Safety Report 16463483 (Version 1)
Quarter: 2019Q2

REPORT INFORMATION
  Report Type: Spontaneous
  Country: US (occurrence: US)
  Receive Date: 20190513
  Receipt Date: 20190513
  Transmission Date: 20190711
  Serious: Yes (Hospitalization)
  Sender: FDA-Public Use
  Company Number: None

PATIENT
  Age: 30 Year
  Sex: Male
  Weight: 102.51 kg

DRUGS (2)
  1. HALOPERIDOL. [Suspect]
     Active Substance: HALOPERIDOL
     Indication: AGITATION
     Dosage: ?          OTHER DOSE:5MG/ML MG;?
     Route: 041
     Dates: start: 20180202, end: 20180202
  2. LORAZEPAM. [Suspect]
     Active Substance: LORAZEPAM
     Indication: AGITATION
     Dosage: ?          OTHER DOSE:2 MG/ML MG;?
     Route: 041
     Dates: start: 20180202, end: 20180207

REACTIONS (2)
  - Sedation [None]
  - Apnoea [None]

NARRATIVE: CASE EVENT DATE: 20180202
